FAERS Safety Report 9846270 (Version 5)
Quarter: 2014Q2

REPORT INFORMATION
  Report Type: Report from Study
  Country: IL (occurrence: IL)
  Receive Date: 20140127
  Receipt Date: 20140618
  Transmission Date: 20141212
  Serious: Yes (Hospitalization, Other)
  Sender: FDA-Public Use
  Company Number: PHHY2013IL152595

PATIENT
  Age: 81 Year
  Sex: Male

DRUGS (2)
  1. SANDOSTATIN LAR [Suspect]
     Indication: CARCINOID SYNDROME
     Dosage: 30 MG, EVERY 4 WEEKS
     Route: 030
     Dates: start: 20130211
  2. SANDOSTATIN LAR [Suspect]
     Indication: NEOPLASM PROSTATE

REACTIONS (2)
  - Bladder neoplasm [Not Recovered/Not Resolved]
  - Haematuria [Recovering/Resolving]
